FAERS Safety Report 5661200-6 (Version None)
Quarter: 2008Q1

REPORT INFORMATION
  Report Type: 
  Country: None (occurrence: None)
  Receive Date: 20080312
  Receipt Date: 20080228
  Transmission Date: 20080703
  Serious: Yes (Hospitalization)
  Sender: FDA-Public Use
  Company Number: GB-RANBAXY-2008RR-13408

PATIENT

DRUGS (4)
  1. ACICLOVIR TABLETS BP 800MG [Suspect]
     Indication: RENAL NECROSIS
     Dosage: 850 MG, TID
     Route: 042
  2. PREDNISOLONE [Concomitant]
     Dosage: 80 MG, UNK
     Route: 048
  3. PREDNISOLONE [Concomitant]
     Dosage: 60 MG, UNK
  4. VANCYCLOVIR [Concomitant]
     Dosage: 1 G, TID

REACTIONS (2)
  - NEUROTOXICITY [None]
  - PARAESTHESIA [None]
